FAERS Safety Report 7325700-5 (Version None)
Quarter: 2011Q1

REPORT INFORMATION
  Report Type: 
  Country: None (occurrence: None)
  Receive Date: 20110302
  Receipt Date: 20110218
  Transmission Date: 20110831
  Serious: Yes (Hospitalization)
  Sender: FDA-Public Use
  Company Number: JP-SANOFI-AVENTIS-2010SA018550

PATIENT
  Age: 67 Year
  Sex: Female

DRUGS (1)
  1. MYSLEE [Suspect]
     Route: 048

REACTIONS (10)
  - DRUG DEPENDENCE [None]
  - ALTERED STATE OF CONSCIOUSNESS [None]
  - DRUG WITHDRAWAL SYNDROME [None]
  - HALLUCINATION [None]
  - MUSCLE TIGHTNESS [None]
  - CONVULSION [None]
  - INSOMNIA [None]
  - BULIMIA NERVOSA [None]
  - LABORATORY TEST ABNORMAL [None]
  - NEUROLEPTIC MALIGNANT SYNDROME [None]
